FAERS Safety Report 4781684-5 (Version None)
Quarter: 2005Q3

REPORT INFORMATION
  Report Type: 
  Country: None (occurrence: None)
  Receive Date: 20050927
  Receipt Date: 20050913
  Transmission Date: 20060218
  Serious: Yes (Hospitalization, Disabling, Other)
  Sender: FDA-Public Use
  Company Number: JP_050506668

PATIENT
  Age: 29 Year
  Sex: Female
  Weight: 60 kg

DRUGS (2)
  1. HUMALOG [Suspect]
     Indication: DIABETES MELLITUS INSULIN-DEPENDENT
     Dosage: 33 U DAY
     Dates: start: 20050420, end: 20050907
  2. LANTUS [Concomitant]

REACTIONS (11)
  - ABSCESS [None]
  - CELLULITIS [None]
  - DRUG ADMINISTRATION ERROR [None]
  - FEELING ABNORMAL [None]
  - HYPOGLYCAEMIC COMA [None]
  - LIMB INJURY [None]
  - OVERDOSE [None]
  - SOFT TISSUE DISORDER [None]
  - TOE AMPUTATION [None]
  - WOUND SECRETION [None]
  - X-RAY ABNORMAL [None]
